FAERS Safety Report 20459981 (Version 1)
Quarter: 2022Q1

REPORT INFORMATION
  Report Type: Spontaneous
  Country: CN (occurrence: None)
  Receive Date: 20220211
  Receipt Date: 20220211
  Transmission Date: 20220424
  Serious: Yes (Death)
  Sender: FDA-Public Use
  Company Number: CN-ROCHE-3023362

PATIENT
  Age: 66 Year
  Sex: Female

DRUGS (2)
  1. TECENTRIQ [Suspect]
     Active Substance: ATEZOLIZUMAB
     Indication: Lung neoplasm malignant
     Dosage: PER 3 WEEKS, INJECTION; 1200MG/20ML/BOTTLE
     Route: 041
     Dates: start: 20210604, end: 20210801
  2. AVASTIN [Suspect]
     Active Substance: BEVACIZUMAB
     Indication: Lung cancer metastatic
     Dosage: INJECTION; 100MG(4ML)/BOTTLE/BOX
     Route: 041
     Dates: start: 20210604, end: 20210801

REACTIONS (2)
  - Condition aggravated [Unknown]
  - Death [Fatal]
